FAERS Safety Report 8895669 (Version 1)
Quarter: 2012Q4

REPORT INFORMATION
  Report Type: 
  Country: CA (occurrence: CA)
  Receive Date: 20121107
  Receipt Date: 20121107
  Transmission Date: 20130627
  Serious: Yes (Other)
  Sender: FDA-Public Use
  Company Number: CA-INCYTE CORPORATION-2012IN001838

PATIENT
  Age: 69 None
  Sex: Male

DRUGS (9)
  1. JAKAVI [Suspect]
     Indication: MYELOFIBROSIS
     Dosage: 20 mg, bid
     Route: 048
     Dates: start: 20120811
  2. JAKAVI [Suspect]
     Dosage: UNK
  3. CYCLOSPORINE [Concomitant]
  4. AVODART [Concomitant]
  5. PANTOLOC [Concomitant]
  6. FOLIC ACID [Concomitant]
  7. VITAMIN D [Concomitant]
  8. CIALIS [Concomitant]
  9. ASA [Concomitant]

REACTIONS (2)
  - Renal failure [Not Recovered/Not Resolved]
  - Anaemia [Not Recovered/Not Resolved]
